FAERS Safety Report 25103758 (Version 1)
Quarter: 2025Q1

REPORT INFORMATION
  Report Type: Spontaneous
  Country: US (occurrence: US)
  Receive Date: 20250321
  Receipt Date: 20250321
  Transmission Date: 20250408
  Serious: No
  Sender: NOVARTIS
  Company Number: US-SANDOZ-SDZ2025US016702

PATIENT
  Sex: Female

DRUGS (4)
  1. ROSUVASTATIN [Suspect]
     Active Substance: ROSUVASTATIN
     Indication: Product used for unknown indication
     Route: 065
  2. ZOLEDRONIC ACID [Suspect]
     Active Substance: ZOLEDRONIC ACID
     Indication: Product used for unknown indication
     Route: 065
  3. IBRANCE [Suspect]
     Active Substance: PALBOCICLIB
     Indication: Breast cancer metastatic
     Dosage: 125 MG, QD (125 MG, DAILY)
     Route: 048
     Dates: start: 20250124
  4. ANASTROZOLE [Concomitant]
     Active Substance: ANASTROZOLE
     Indication: Product used for unknown indication
     Route: 065

REACTIONS (11)
  - Blood cholesterol increased [Unknown]
  - Decreased appetite [Unknown]
  - Blood glucose increased [Unknown]
  - Hot flush [Unknown]
  - Gait disturbance [Unknown]
  - Chills [Unknown]
  - Hyperhidrosis [Unknown]
  - Bone pain [Unknown]
  - Tremor [Unknown]
  - Fatigue [Unknown]
  - Headache [Unknown]

NARRATIVE: CASE EVENT DATE: 20250225
